FAERS Safety Report 4751032-5 (Version None)
Quarter: 2005Q3

REPORT INFORMATION
  Report Type: 
  Country: None (occurrence: None)
  Receive Date: 20050822
  Receipt Date: 20050810
  Transmission Date: 20060218
  Serious: Yes (Death, Hospitalization)
  Sender: FDA-Public Use
  Company Number: 200506IM000213

PATIENT
  Age: 73 Year
  Sex: Male
  Weight: 65.7716 kg

DRUGS (10)
  1. ACTIMMUNE [Suspect]
     Indication: IDIOPATHIC PULMONARY FIBROSIS
     Dosage: SEE IMAGE
     Dates: start: 20041001, end: 20041013
  2. ACTIMMUNE [Suspect]
     Indication: IDIOPATHIC PULMONARY FIBROSIS
     Dosage: SEE IMAGE
     Dates: start: 20041014, end: 20050506
  3. BACTRIM [Concomitant]
  4. CELLCEPT [Concomitant]
  5. BENZONATATE [Concomitant]
  6. PREDNISONE TAB [Concomitant]
  7. LIPITOR [Concomitant]
  8. AMBIEN [Concomitant]
  9. PAXIL [Concomitant]
  10. PRILOSEC [Concomitant]

REACTIONS (20)
  - ABNORMAL FAECES [None]
  - ANOREXIA [None]
  - BACK PAIN [None]
  - CHEST PAIN [None]
  - COUGH [None]
  - DIARRHOEA [None]
  - DIZZINESS [None]
  - FATIGUE [None]
  - FEELING COLD [None]
  - FLUSHING [None]
  - GENERAL PHYSICAL HEALTH DETERIORATION [None]
  - HEADACHE [None]
  - HEART RATE INCREASED [None]
  - HYPERSENSITIVITY [None]
  - INSOMNIA [None]
  - OXYGEN SATURATION DECREASED [None]
  - PAIN IN EXTREMITY [None]
  - RESTLESSNESS [None]
  - TREMOR [None]
  - WEIGHT DECREASED [None]
